FAERS Safety Report 22306394 (Version 7)
Quarter: 2023Q4

REPORT INFORMATION
  Report Type: Spontaneous
  Country: CA (occurrence: CA)
  Receive Date: 20230511
  Receipt Date: 20231208
  Transmission Date: 20240109
  Serious: Yes (Other)
  Sender: FDA-Public Use
  Company Number: CA-CELLTRION INC.-2023CA008772

PATIENT

DRUGS (6)
  1. INFLECTRA [Suspect]
     Active Substance: INFLIXIMAB-DYYB
     Indication: Psoriatic arthropathy
     Dosage: 200 MG, Q 0, 2, 6 WEEKS THE EVERY 8 WEEKS
     Route: 042
     Dates: start: 20230304
  2. INFLECTRA [Suspect]
     Active Substance: INFLIXIMAB-DYYB
     Dosage: 200 MG, Q 0, 2, 6 WEEKS THE EVERY 8 WEEKS
     Route: 042
     Dates: start: 20230504
  3. INFLECTRA [Suspect]
     Active Substance: INFLIXIMAB-DYYB
     Dosage: 200 MG, Q 0, 2, 6 WEEKS THE EVERY 8 WEEKS
     Route: 042
     Dates: start: 20230517
  4. INFLECTRA [Suspect]
     Active Substance: INFLIXIMAB-DYYB
     Dosage: 200 MG, Q 0, 2, 6 WEEKS THE EVERY 8 WEEKS
     Route: 042
     Dates: start: 20230623
  5. INFLECTRA [Suspect]
     Active Substance: INFLIXIMAB-DYYB
     Dosage: 200 MG, 8 WEEKS AND 4 DAYS
     Route: 042
     Dates: start: 20230822
  6. INFLECTRA [Suspect]
     Active Substance: INFLIXIMAB-DYYB
     Dosage: 200 MG, Q 0, 2, 6 WEEKS THE EVERY 8 WEEKS (200MG, 14 WEEKS)
     Route: 042
     Dates: start: 20231128

REACTIONS (6)
  - Blood pressure systolic increased [Not Recovered/Not Resolved]
  - Visual impairment [Unknown]
  - Off label use [Unknown]
  - Inappropriate schedule of product administration [Unknown]
  - Off label use [Unknown]
  - Influenza [Unknown]

NARRATIVE: CASE EVENT DATE: 20230101
